FAERS Safety Report 9736471 (Version 2)
Quarter: 2013Q4

REPORT INFORMATION
  Report Type: Report from Study
  Country: JP (occurrence: JP)
  Receive Date: 20131206
  Receipt Date: 20131211
  Transmission Date: 20140711
  Serious: Yes (Other)
  Sender: FDA-Public Use
  Company Number: JP-ABBVIE-13P-087-1175161-00

PATIENT
  Age: 61 Year
  Sex: Female
  Weight: 64.4 kg

DRUGS (6)
  1. HUMIRA [Suspect]
     Indication: RHEUMATOID ARTHRITIS
     Route: 058
     Dates: start: 20090914
  2. METHOTREXATE [Concomitant]
     Indication: RHEUMATOID ARTHRITIS
     Dosage: 8 MG/WEEK
  3. METHYLPREDNISOLONE [Concomitant]
     Indication: RHEUMATOID ARTHRITIS
     Route: 048
     Dates: start: 20090820
  4. FOLIC ACID [Concomitant]
     Indication: PROPHYLAXIS
     Dosage: 5 MG/WEEK
  5. FOLIC ACID [Concomitant]
     Indication: ADVERSE DRUG REACTION
  6. SULINDAC [Concomitant]
     Indication: RHEUMATOID ARTHRITIS
     Dates: start: 20090608

REACTIONS (1)
  - Arthralgia [Not Recovered/Not Resolved]
